FAERS Safety Report 8521553-8 (Version None)
Quarter: 2012Q3

REPORT INFORMATION
  Report Type: 
  Country: None (occurrence: None)
  Receive Date: 20120719
  Receipt Date: 20120713
  Transmission Date: 20120928
  Serious: Yes (Other)
  Sender: FDA-Public Use
  Company Number: PHEH2012US013913

PATIENT
  Sex: Female

DRUGS (5)
  1. REVLIMID [Suspect]
     Dosage: 5 MG, DAILY
     Route: 048
     Dates: start: 20101001
  2. ARANESP [Concomitant]
  3. ZOMETA [Suspect]
  4. REVLIMID [Suspect]
     Dosage: 10 MG, DAILY
     Route: 048
     Dates: start: 20100701, end: 20101001
  5. REVLIMID [Suspect]
     Indication: MULTIPLE MYELOMA
     Dosage: 25 MG, DAILY
     Route: 048
     Dates: start: 20100607, end: 20100701

REACTIONS (5)
  - ORAL PAIN [None]
  - OSTEONECROSIS OF JAW [None]
  - GINGIVAL PAIN [None]
  - TOOTHACHE [None]
  - FATIGUE [None]
